FAERS Safety Report 8053199-2 (Version None)
Quarter: 2012Q1

REPORT INFORMATION
  Report Type: 
  Country: None (occurrence: None)
  Receive Date: 20120118
  Receipt Date: 20120116
  Transmission Date: 20120608
  Serious: Yes (Death)
  Sender: FDA-Public Use
  Company Number: GB-ROCHE-1018853

PATIENT

DRUGS (9)
  1. LUCENTIS [Suspect]
     Indication: CHOROIDAL NEOVASCULARISATION
     Route: 050
     Dates: start: 20091021
  2. WARFARIN SODIUM [Concomitant]
  3. GLICLAZIDE [Concomitant]
  4. SPIRONOLACTONE [Concomitant]
  5. BISOPROLOL FUMARATE [Concomitant]
  6. FUROSEMIDE [Concomitant]
  7. LANSOPRAZOLE [Concomitant]
  8. DIGOXIN [Concomitant]
  9. CITALOPRAM [Concomitant]

REACTIONS (1)
  - DEATH [None]
